FAERS Safety Report 7479586-9 (Version None)
Quarter: 2011Q2

REPORT INFORMATION
  Report Type: 
  Country: None (occurrence: None)
  Receive Date: 20110513
  Receipt Date: 20110502
  Transmission Date: 20111010
  Serious: Yes (Life-Threatening, Hospitalization)
  Sender: FDA-Public Use
  Company Number: SE-GENENTECH-317058

PATIENT
  Sex: Female

DRUGS (3)
  1. XOLAIR [Suspect]
     Indication: PRODUCT USED FOR UNKNOWN INDICATION
     Dosage: 300 MG, UNKNOWN
     Dates: start: 20110311
  2. XOLAIR [Suspect]
     Dosage: 600 MG, UNKNOWN
     Dates: start: 20110407
  3. XOLAIR [Suspect]
     Dosage: 450 MG, UNK
     Dates: start: 20110324

REACTIONS (1)
  - ANAPHYLACTIC SHOCK [None]
